FAERS Safety Report 9382028 (Version 2)
Quarter: 2013Q3

REPORT INFORMATION
  Report Type: Spontaneous
  Country: US (occurrence: US)
  Receive Date: 20130703
  Receipt Date: 20130820
  Transmission Date: 20140515
  Serious: Yes (Other)
  Sender: FDA-Public Use
  Company Number: US-PFIZER INC-2013194418

PATIENT
  Age: 44 Year
  Sex: Female
  Weight: 92.97 kg

DRUGS (1)
  1. PREPARATION H MEDICATED WIPES [Suspect]
     Indication: HAEMORRHOIDS
     Dosage: UNK, 2X/DAY

REACTIONS (3)
  - Breast cancer female [Recovering/Resolving]
  - Poor quality drug administered [Unknown]
  - Product quality issue [Unknown]
